FAERS Safety Report 10784148 (Version 1)
Quarter: 2015Q1

REPORT INFORMATION
  Report Type: Other
  Country: US (occurrence: US)
  Receive Date: 20150211
  Receipt Date: 20150211
  Transmission Date: 20150721
  Serious: Yes (Death)
  Sender: FDA-Public Use
  Company Number: US-LUPIN PHARMACEUTICALS INC.-2015-00299

PATIENT
  Age: 39 Year
  Sex: Male

DRUGS (6)
  1. ZIPRASIDONE [Suspect]
     Active Substance: ZIPRASIDONE
     Indication: PRODUCT USED FOR UNKNOWN INDICATION
     Route: 048
  2. ATROPINE + DIPHENOXYLATE [Suspect]
     Active Substance: ATROPINE\DIPHENOXYLATE
     Indication: PRODUCT USED FOR UNKNOWN INDICATION
     Route: 048
  3. TRAMADOL [Suspect]
     Active Substance: TRAMADOL
     Indication: PRODUCT USED FOR UNKNOWN INDICATION
     Route: 048
  4. AMANTADINE [Suspect]
     Active Substance: AMANTADINE
     Indication: PRODUCT USED FOR UNKNOWN INDICATION
     Route: 048
  5. PAROXETINE [Suspect]
     Active Substance: PAROXETINE\PAROXETINE HYDROCHLORIDE
     Indication: PRODUCT USED FOR UNKNOWN INDICATION
     Route: 048
  6. HYDROMORPHONE [Suspect]
     Active Substance: HYDROMORPHONE
     Indication: PRODUCT USED FOR UNKNOWN INDICATION
     Route: 048

REACTIONS (1)
  - Toxicity to various agents [Fatal]
